FAERS Safety Report 12601368 (Version 1)
Quarter: 2016Q3

REPORT INFORMATION
  Report Type: Spontaneous
  Country: IN (occurrence: IN)
  Receive Date: 20160728
  Receipt Date: 20160728
  Transmission Date: 20161109
  Serious: No
  Sender: FDA-Public Use
  Company Number: IN-LUPIN PHARMACEUTICALS INC.-E2B_00003833

PATIENT
  Age: 21 Year
  Sex: Male

DRUGS (2)
  1. EPILIVE [Suspect]
     Active Substance: LEVETIRACETAM
     Indication: EPILEPSY
     Route: 048
     Dates: start: 201109
  2. EPILIVE [Suspect]
     Active Substance: LEVETIRACETAM
     Route: 048

REACTIONS (4)
  - Incorrect dose administered [Not Recovered/Not Resolved]
  - Anger [Not Recovered/Not Resolved]
  - Back pain [Not Recovered/Not Resolved]
  - Tension [Not Recovered/Not Resolved]

NARRATIVE: CASE EVENT DATE: 2014
